FAERS Safety Report 24527377 (Version 1)
Quarter: 2024Q4

REPORT INFORMATION
  Report Type: Spontaneous
  Country: JP (occurrence: JP)
  Receive Date: 20241021
  Receipt Date: 20241021
  Transmission Date: 20250115
  Serious: Yes (Hospitalization)
  Sender: NOVITIUM PHARMA
  Company Number: JP-NOVITIUMPHARMA-2024JPNVP02308

PATIENT
  Age: 77 Year
  Sex: Male

DRUGS (6)
  1. SILDENAFIL CITRATE [Suspect]
     Active Substance: SILDENAFIL CITRATE
     Indication: Pulmonary hypertension
     Route: 048
  2. SILDENAFIL CITRATE [Suspect]
     Active Substance: SILDENAFIL CITRATE
     Indication: Interstitial lung disease
     Dosage: INCREASED
     Route: 048
  3. MACITENTAN [Concomitant]
     Active Substance: MACITENTAN
     Indication: Pulmonary hypertension
     Route: 048
  4. MACITENTAN [Concomitant]
     Active Substance: MACITENTAN
     Indication: Interstitial lung disease
     Dosage: INCREASED
     Route: 048
  5. SELEXIPAG [Concomitant]
     Active Substance: SELEXIPAG
     Indication: Pulmonary hypertension
     Route: 048
  6. SELEXIPAG [Concomitant]
     Active Substance: SELEXIPAG
     Indication: Interstitial lung disease
     Dosage: INCREASED
     Route: 048

REACTIONS (2)
  - Rhinorrhoea [Unknown]
  - Headache [Unknown]
